FAERS Safety Report 6278780-2 (Version None)
Quarter: 2009Q3

REPORT INFORMATION
  Report Type: 
  Country: None (occurrence: None)
  Receive Date: 20090723
  Receipt Date: 20070621
  Transmission Date: 20100115
  Serious: Yes (Hospitalization, Other)
  Sender: FDA-Public Use
  Company Number: US-ASTRAZENECA-2006UW11438

PATIENT
  Age: 8352 Day
  Sex: Female

DRUGS (5)
  1. SEROQUEL [Suspect]
     Indication: DEPRESSION
     Route: 048
     Dates: start: 20050118
  2. LANTUS [Concomitant]
     Dosage: 50-100 UNITS, AT NIGHT
     Dates: start: 20040326
  3. TYLENOL [Concomitant]
     Dates: start: 20050310
  4. DECONEX [Concomitant]
     Dates: start: 20050310
  5. NOVOLOG [Concomitant]
     Dosage: 50 UNITS, THREE TIMES A DAY
     Route: 058
     Dates: start: 20050310

REACTIONS (4)
  - DIABETES MELLITUS [None]
  - DIABETES MELLITUS INADEQUATE CONTROL [None]
  - DIABETIC NEPHROPATHY [None]
  - DIABETIC NEUROPATHY [None]
